FAERS Safety Report 25001117 (Version 3)
Quarter: 2025Q3

REPORT INFORMATION
  Report Type: Spontaneous
  Country: US (occurrence: US)
  Receive Date: 20250222
  Receipt Date: 20250702
  Transmission Date: 20251021
  Serious: No
  Sender: SANOFI AVENTIS
  Company Number: US-SA-2025SA052666

PATIENT
  Age: 21 Year
  Sex: Female

DRUGS (5)
  1. DUPIXENT [Suspect]
     Active Substance: DUPILUMAB
     Indication: Asthma
     Route: 058
     Dates: start: 20230815, end: 20230815
  2. DUPIXENT [Suspect]
     Active Substance: DUPILUMAB
     Dosage: 300 MG, QOW
     Route: 058
     Dates: start: 20230902
  3. DUPIXENT [Suspect]
     Active Substance: DUPILUMAB
     Dosage: 300 MG, QOW
     Route: 058
     Dates: start: 2025
  4. FOCALIN [Concomitant]
     Active Substance: DEXMETHYLPHENIDATE HYDROCHLORIDE
  5. VYVANSE [Concomitant]
     Active Substance: LISDEXAMFETAMINE DIMESYLATE

REACTIONS (18)
  - Chest discomfort [Unknown]
  - Gait inability [Unknown]
  - Attention deficit hyperactivity disorder [Unknown]
  - Disturbance in attention [Unknown]
  - Condition aggravated [Unknown]
  - Dyspnoea exertional [Unknown]
  - Condition aggravated [Unknown]
  - Nasopharyngitis [Unknown]
  - Pain [Unknown]
  - Nasal congestion [Unknown]
  - Rhinorrhoea [Unknown]
  - Chills [Unknown]
  - Headache [Unknown]
  - Oropharyngeal pain [Unknown]
  - Asthma [Not Recovered/Not Resolved]
  - Dyspnoea [Not Recovered/Not Resolved]
  - Product dose omission in error [Unknown]
  - Inappropriate schedule of product administration [Unknown]

NARRATIVE: CASE EVENT DATE: 20250626
